FAERS Safety Report 6643882-5 (Version None)
Quarter: 2010Q1

REPORT INFORMATION
  Report Type: 
  Country: None (occurrence: None)
  Receive Date: 20100322
  Receipt Date: 20100308
  Transmission Date: 20100710
  Serious: Yes (Other)
  Sender: FDA-Public Use
  Company Number: FR-ELI_LILLY_AND_COMPANY-FR201002000164

PATIENT
  Age: 61 Year
  Sex: Female
  Weight: 98 kg

DRUGS (8)
  1. BYETTA [Suspect]
     Indication: INSULIN-REQUIRING TYPE 2 DIABETES MELLITUS
     Dosage: 10 UG, 2/D
     Route: 058
     Dates: start: 20090501, end: 20100122
  2. ORAL ANTIDIABETICS [Concomitant]
     Indication: DIABETES MELLITUS
     Dosage: UNK, UNKNOWN
     Route: 048
  3. CRESTOR [Concomitant]
     Indication: HYPERCHOLESTEROLAEMIA
     Dosage: 5 MG, DAILY (1/D)
     Route: 048
     Dates: start: 20070101
  4. NEXIUM [Concomitant]
     Indication: GASTRITIS
     Dosage: 40 MG, DAILY (1/D)
     Route: 048
     Dates: start: 20080101
  5. IMODIUM [Concomitant]
     Indication: DIARRHOEA
     Route: 048
     Dates: start: 19980101
  6. SEROPLEX [Concomitant]
     Indication: DEPRESSION
     Dosage: 20 MG, DAILY (1/D)
     Route: 048
     Dates: start: 20090101
  7. NOVONORM [Concomitant]
     Indication: DIABETES MELLITUS
     Dosage: 0.5 MG, DAILY (1/D)
     Route: 048
     Dates: start: 20091101, end: 20100101
  8. LANTUS [Concomitant]
     Indication: DIABETES MELLITUS
     Dosage: 32 U, UNK
     Route: 058
     Dates: start: 20070101, end: 20090501

REACTIONS (3)
  - HYPERGLYCAEMIA [None]
  - HYPOGLYCAEMIA [None]
  - OFF LABEL USE [None]
